FAERS Safety Report 19140729 (Version 1)
Quarter: 2021Q2

REPORT INFORMATION
  Report Type: Spontaneous
  Country: AU (occurrence: AU)
  Receive Date: 20210415
  Receipt Date: 20210415
  Transmission Date: 20210717
  Serious: Yes (Hospitalization)
  Sender: FDA-Public Use
  Company Number: AU-PFIZER INC-2021214200

PATIENT
  Age: 54 Year
  Sex: Female
  Weight: 72 kg

DRUGS (5)
  1. HEPARIN [Suspect]
     Active Substance: HEPARIN SODIUM
     Indication: ANTICOAGULANT THERAPY
     Dosage: 5000 IU
     Route: 040
  2. POTASSIUM CHLORIDE. [Concomitant]
     Active Substance: POTASSIUM CHLORIDE
     Dosage: 30 MMOL
  3. BUPIVACAINE HCL [Suspect]
     Active Substance: BUPIVACAINE HYDROCHLORIDE
     Dosage: 6 ML (PLAIN)
     Route: 008
  4. HEPARIN [Suspect]
     Active Substance: HEPARIN SODIUM
     Dosage: 750 IU (750 UNITS PER HOUR, INTRAVENOUS INFUSION)
     Route: 042
  5. BUPIVACAINE HCL [Suspect]
     Active Substance: BUPIVACAINE HYDROCHLORIDE
     Indication: ANAESTHESIA
     Dosage: 2.6 ML (HEAVY)
     Route: 008

REACTIONS (3)
  - Areflexia [Recovered/Resolved]
  - Back pain [Unknown]
  - Spinal subdural haematoma [Recovered/Resolved]
